FAERS Safety Report 25595883 (Version 2)
Quarter: 2025Q4

REPORT INFORMATION
  Report Type: Spontaneous
  Country: JP (occurrence: JP)
  Receive Date: 20250723
  Receipt Date: 20251007
  Transmission Date: 20260118
  Serious: Yes (Other)
  Sender: ALEXION PHARMACEUTICALS
  Company Number: JP-ASTRAZENECA-202507JPN010771JP

PATIENT
  Age: 61 Year
  Sex: Female

DRUGS (4)
  1. ULTOMIRIS [Suspect]
     Active Substance: RAVULIZUMAB-CWVZ
     Indication: Paroxysmal nocturnal haemoglobinuria
     Dosage: 3300 MILLIGRAM, Q8W
     Route: 065
     Dates: start: 20191029
  2. CYCLOSPORINE [Concomitant]
     Active Substance: CYCLOSPORINE
     Indication: Paroxysmal nocturnal haemoglobinuria
     Dosage: 120 MILLIGRAM, BID
     Dates: start: 20221011
  3. SULFAMETHOXAZOLE\TRIMETHOPRIM [Concomitant]
     Active Substance: SULFAMETHOXAZOLE\TRIMETHOPRIM
     Indication: Paroxysmal nocturnal haemoglobinuria
     Dosage: 1 DOSAGE FORM, QD
     Dates: start: 20150727
  4. FEXOFENADINE [Concomitant]
     Active Substance: FEXOFENADINE HYDROCHLORIDE
     Indication: Seasonal allergy
     Dosage: UNK
     Dates: start: 20250311, end: 20250630

REACTIONS (1)
  - Breakthrough haemolysis [Recovered/Resolved]

NARRATIVE: CASE EVENT DATE: 20240213
